FAERS Safety Report 11107416 (Version 4)
Quarter: 2015Q3

REPORT INFORMATION
  Report Type: Spontaneous
  Country: US (occurrence: US)
  Receive Date: 20150512
  Receipt Date: 20150817
  Transmission Date: 20151125
  Serious: No
  Sender: FDA-Public Use
  Company Number: US-PFIZER INC-2015155420

PATIENT
  Age: 62 Year
  Sex: Male
  Weight: 69 kg

DRUGS (13)
  1. AMLODIPINE [Concomitant]
     Active Substance: AMLODIPINE BESYLATE
     Dosage: 10 MG, 1X/DAY
     Dates: start: 2012
  2. DEXAMETHASONE. [Concomitant]
     Active Substance: DEXAMETHASONE
     Dosage: 2 DF, WEEKLY (ON WEDNESDAY)
     Dates: start: 201505
  3. LYRICA [Suspect]
     Active Substance: PREGABALIN
     Indication: NEUROPATHY PERIPHERAL
     Dosage: 50 MG, 3X/DAY
     Route: 048
     Dates: start: 20150301
  4. LYRICA [Suspect]
     Active Substance: PREGABALIN
     Dosage: 100 MG, 3X/DAY
     Route: 048
  5. SULFAMETHOXAZOLE AND TRIMETHOPRIM [Concomitant]
     Active Substance: SULFAMETHOXAZOLE\TRIMETHOPRIM
     Dosage: 1 DF, MONDAY, WEDNESDAY AND FRIDAY
     Dates: start: 201505
  6. HYDROCODONE [Concomitant]
     Active Substance: HYDROCODONE
     Indication: INSOMNIA
     Dosage: 325 MG, AS NEEDED
     Dates: start: 201406
  7. REVLIMID [Concomitant]
     Active Substance: LENALIDOMIDE
     Dosage: 15 MG, WEEKLY
     Dates: start: 201505
  8. LYRICA [Suspect]
     Active Substance: PREGABALIN
     Dosage: 100 MG, 3X/DAY
     Route: 048
     Dates: start: 201503, end: 201506
  9. HYDROCODONE [Concomitant]
     Active Substance: HYDROCODONE
     Indication: MIDDLE INSOMNIA
  10. LYRICA [Suspect]
     Active Substance: PREGABALIN
     Dosage: UNK
     Route: 048
  11. MORPHINE [Concomitant]
     Active Substance: MORPHINE
     Dosage: 30 MG, 2X/DAY
     Dates: start: 201406
  12. VELCADE [Suspect]
     Active Substance: BORTEZOMIB
     Indication: PLASMA CELL MYELOMA
     Dosage: 1 SHOT IN STOMACH 2 X PER WEEK
     Dates: start: 201403, end: 201407
  13. VALTREX [Concomitant]
     Active Substance: VALACYCLOVIR HYDROCHLORIDE
     Dosage: 500 MG, DAILY
     Dates: start: 201403

REACTIONS (4)
  - Pain [Not Recovered/Not Resolved]
  - Neuropathy peripheral [Not Recovered/Not Resolved]
  - Condition aggravated [Not Recovered/Not Resolved]
  - Toxicity to various agents [Unknown]

NARRATIVE: CASE EVENT DATE: 2015
